FAERS Safety Report 7893859-7 (Version None)
Quarter: 2011Q4

REPORT INFORMATION
  Report Type: 
  Country: None (occurrence: None)
  Receive Date: 20111104
  Receipt Date: 20111021
  Transmission Date: 20120403
  Serious: Yes (Other)
  Sender: FDA-Public Use
  Company Number: PHHY2011JP86487

PATIENT
  Age: 50 Year
  Sex: Male

DRUGS (2)
  1. INFLIXIMAB [Suspect]
     Indication: ERYTHRODERMIC PSORIASIS
     Dosage: UNK UKN, UNK
     Dates: start: 20080801
  2. CYCLOSPORINE [Suspect]
     Indication: ERYTHRODERMIC PSORIASIS
     Dosage: UNK UKN, UNK
     Route: 065
     Dates: start: 19940101

REACTIONS (3)
  - CELL MARKER INCREASED [None]
  - INTERSTITIAL LUNG DISEASE [None]
  - RENAL IMPAIRMENT [None]
